FAERS Safety Report 5645849-2 (Version None)
Quarter: 2008Q1

REPORT INFORMATION
  Report Type: 
  Country: None (occurrence: None)
  Receive Date: 20080229
  Receipt Date: 20080219
  Transmission Date: 20080703
  Serious: Yes (Hospitalization)
  Sender: FDA-Public Use
  Company Number: PT-PFIZER INC-2008006238

PATIENT
  Sex: Female
  Weight: 63 kg

DRUGS (3)
  1. CHANTIX [Suspect]
     Indication: SMOKING CESSATION THERAPY
     Route: 048
  2. CHANTIX [Suspect]
     Route: 048
  3. TIBOLONE [Concomitant]
     Route: 048
     Dates: start: 19970101, end: 20080106

REACTIONS (1)
  - HEPATITIS [None]
